FAERS Safety Report 24077126 (Version 1)
Quarter: 2024Q3

REPORT INFORMATION
  Report Type: Spontaneous
  Country: FR (occurrence: FR)
  Receive Date: 20240711
  Receipt Date: 20240711
  Transmission Date: 20241016
  Serious: Yes (Hospitalization, Other)
  Sender: CHEPLAPHARM
  Company Number: None

PATIENT
  Age: 55 Year
  Sex: Male

DRUGS (12)
  1. OLANZAPINE [Suspect]
     Active Substance: OLANZAPINE
     Dosage: 20 TABLETS
  2. OXAZEPAM [Suspect]
     Active Substance: OXAZEPAM
     Dosage: 20 TABLETS
  3. CITALOPRAM HYDROCHLORIDE [Suspect]
     Active Substance: CITALOPRAM HYDROCHLORIDE
     Dosage: 20 TABLETS
  4. LOXAPINE [Suspect]
     Active Substance: LOXAPINE
     Dosage: 20 TABLETS
  5. LORMETAZEPAM [Suspect]
     Active Substance: LORMETAZEPAM
  6. COCAINE [Suspect]
     Active Substance: COCAINE
  7. ZOPICLONE [Suspect]
     Active Substance: ZOPICLONE
  8. VENLAFAXINE [Suspect]
     Active Substance: VENLAFAXINE HYDROCHLORIDE
     Dosage: 20 TABLETS
  9. ALCOHOL [Suspect]
     Active Substance: ALCOHOL
  10. ACETAMINOPHEN [Suspect]
     Active Substance: ACETAMINOPHEN
  11. LORAZEPAM [Suspect]
     Active Substance: LORAZEPAM
  12. AMOXAPINE [Suspect]
     Active Substance: AMOXAPINE

REACTIONS (4)
  - Miosis [Recovered/Resolved]
  - Somnolence [Recovered/Resolved]
  - Toxicity to various agents [Recovered/Resolved]
  - Drug use disorder [Unknown]

NARRATIVE: CASE EVENT DATE: 20231220
